FAERS Safety Report 10036421 (Version 2)
Quarter: 2014Q2

REPORT INFORMATION
  Report Type: Report from Study
  Country: US (occurrence: US)
  Receive Date: 20140325
  Receipt Date: 20140409
  Transmission Date: 20141212
  Serious: Yes (Congenital Anomaly)
  Sender: FDA-Public Use
  Company Number: US-B.I. PHARMACEUTICALS,INC./RIDGEFIELD-2014-BI-12149BP

PATIENT
  Sex: Female
  Weight: .27 kg

DRUGS (3)
  1. VIRAMUNE [Suspect]
     Indication: EXPOSURE DURING PREGNANCY
     Route: 064
  2. 25-ABACAVIR+LAMIVUDINE (EPZICOM?, EPZ) [Concomitant]
     Indication: EXPOSURE DURING PREGNANCY
     Route: 064
     Dates: start: 20131112
  3. 26-TENOFOVIR DISOPROXIL FUMARATE+EMTRICITABINE (TRUVADA?, TVD) [Concomitant]
     Indication: EXPOSURE DURING PREGNANCY
     Route: 064
     Dates: end: 20131112

REACTIONS (1)
  - Neural tube defect [Unknown]
